FAERS Safety Report 13006297 (Version 2)
Quarter: 2016Q4

REPORT INFORMATION
  Report Type: Spontaneous
  Country: US (occurrence: US)
  Receive Date: 20161207
  Receipt Date: 20161228
  Transmission Date: 20170207
  Serious: No
  Sender: FDA-Public Use
  Company Number: US-PFIZER INC-2016561026

PATIENT
  Sex: Female

DRUGS (3)
  1. DEXTROSE. [Suspect]
     Active Substance: DEXTROSE
     Dosage: UNK
  2. MARCAINE [Suspect]
     Active Substance: BUPIVACAINE HYDROCHLORIDE
     Dosage: UNK
  3. MARCAINE [Suspect]
     Active Substance: BUPIVACAINE HYDROCHLORIDE
     Dosage: 12 MG, UNK [ONE TIME DOSE 30APR2016]
     Dates: start: 20160430

REACTIONS (1)
  - Drug ineffective [Recovered/Resolved]
